FAERS Safety Report 8603334-X (Version None)
Quarter: 2012Q3

REPORT INFORMATION
  Report Type: 
  Country: None (occurrence: None)
  Receive Date: 20120817
  Receipt Date: 20120806
  Transmission Date: 20120928
  Serious: Yes (Death)
  Sender: FDA-Public Use
  Company Number: FR-PFIZER INC-2012190554

PATIENT
  Age: 88 Year
  Sex: Male

DRUGS (8)
  1. TORISEL [Suspect]
     Indication: METASTATIC CARCINOMA OF THE BLADDER
     Dosage: UNK
     Dates: start: 20120103, end: 20120320
  2. AMLODIPINE BESYLATE [Concomitant]
     Dosage: UNK
  3. FRAGMIN [Suspect]
     Dosage: UNK
  4. RAMIPRIL [Concomitant]
     Dosage: UNK
  5. ASPIRIN [Concomitant]
     Dosage: UNK
  6. ACETAMINOPHEN [Concomitant]
     Dosage: UNK
  7. HELICIDINE [Concomitant]
     Dosage: UNK
  8. CHONDROSULF [Concomitant]
     Dosage: UNK

REACTIONS (1)
  - HAEMORRHAGIC STROKE [None]
